FAERS Safety Report 26177378 (Version 1)
Quarter: 2025Q4

REPORT INFORMATION
  Report Type: Spontaneous
  Country: US (occurrence: US)
  Receive Date: 20251219
  Receipt Date: 20251219
  Transmission Date: 20260118
  Serious: No
  Sender: BAUSCH AND LOMB
  Company Number: US-BAUSCH-BH-2025-019345

PATIENT
  Age: 77 Year
  Sex: Female

DRUGS (3)
  1. IPRATROPIUM BROMIDE [Suspect]
     Active Substance: IPRATROPIUM BROMIDE
     Indication: Rhinorrhoea
     Dosage: 2 SQUIRTS 2 TIMES A DAY
     Route: 045
     Dates: start: 20250929, end: 2025
  2. IPRATROPIUM BROMIDE [Suspect]
     Active Substance: IPRATROPIUM BROMIDE
     Route: 045
     Dates: start: 2025, end: 2025
  3. IPRATROPIUM BROMIDE [Suspect]
     Active Substance: IPRATROPIUM BROMIDE
     Route: 045
     Dates: start: 20251118

REACTIONS (4)
  - Rhinorrhoea [Unknown]
  - Symptom recurrence [Unknown]
  - Therapy interrupted [Unknown]
  - Product availability issue [Unknown]

NARRATIVE: CASE EVENT DATE: 20250101
